FAERS Safety Report 4855082-X (Version None)
Quarter: 2005Q4

REPORT INFORMATION
  Report Type: 
  Country: None (occurrence: None)
  Receive Date: 20051215
  Receipt Date: 20051006
  Transmission Date: 20060501
  Serious: Yes (Other)
  Sender: FDA-Public Use
  Company Number: DE-ABBOTT-05P-062-0313072-00

PATIENT
  Sex: Female

DRUGS (5)
  1. ERGENYL CHRONO TABLETS [Suspect]
     Indication: DRUG USE FOR UNKNOWN INDICATION
     Route: 048
     Dates: start: 20010228, end: 20011214
  2. ERGENYL CHRONO TABLETS [Suspect]
     Route: 048
     Dates: start: 20011215, end: 20030117
  3. ERGENYL CHRONO TABLETS [Suspect]
     Route: 048
     Dates: start: 20030118
  4. PHENYTOIN [Suspect]
     Indication: DRUG USE FOR UNKNOWN INDICATION
     Dates: start: 20010816, end: 20050901
  5. LEVETIRACETAM [Concomitant]
     Indication: EPILEPSY
     Dates: start: 20050101

REACTIONS (5)
  - ALANINE AMINOTRANSFERASE INCREASED [None]
  - BLOOD ALKALINE PHOSPHATASE INCREASED [None]
  - CONVULSION [None]
  - GAMMA-GLUTAMYLTRANSFERASE INCREASED [None]
  - WEIGHT INCREASED [None]
